FAERS Safety Report 21332387 (Version 1)
Quarter: 2022Q3

REPORT INFORMATION
  Report Type: Spontaneous
  Country: US (occurrence: None)
  Receive Date: 20220913
  Receipt Date: 20220913
  Transmission Date: 20221026
  Serious: No
  Sender: FDA-Public Use
  Company Number: None

PATIENT
  Age: 35 Year
  Sex: Male
  Weight: 99 kg

DRUGS (3)
  1. PAXLOVID [Suspect]
     Active Substance: NIRMATRELVIR\RITONAVIR
     Indication: COVID-19
     Dosage: OTHER QUANTITY : 3 TABLET(S);?FREQUENCY : TWICE A DAY;?
     Route: 048
     Dates: start: 20220912, end: 20220913
  2. DAYQUIL [Concomitant]
  3. TYLENOL [Concomitant]
     Active Substance: ACETAMINOPHEN

REACTIONS (8)
  - Lip swelling [None]
  - Dysgeusia [None]
  - Anxiety [None]
  - Panic attack [None]
  - Tachyphrenia [None]
  - Abnormal dreams [None]
  - Feeling abnormal [None]
  - Memory impairment [None]

NARRATIVE: CASE EVENT DATE: 20220913
